FAERS Safety Report 5806223-9 (Version None)
Quarter: 2008Q3

REPORT INFORMATION
  Report Type: 
  Country: None (occurrence: None)
  Receive Date: 20080710
  Receipt Date: 20080617
  Transmission Date: 20090109
  Serious: Yes (Death)
  Sender: FDA-Public Use
  Company Number: BR-ROCHE-574214

PATIENT
  Sex: Male

DRUGS (15)
  1. ZENAPAX [Suspect]
     Route: 042
     Dates: start: 20030709, end: 20030709
  2. ZENAPAX [Suspect]
     Route: 042
     Dates: start: 20030727, end: 20030903
  3. MYCOPHENOLATE MOFETIL [Suspect]
     Route: 048
     Dates: start: 20030709
  4. SIROLIMUS [Suspect]
     Route: 048
     Dates: start: 20030709
  5. SIROLIMUS [Suspect]
     Route: 048
     Dates: start: 20030713
  6. SIROLIMUS [Suspect]
     Route: 048
     Dates: start: 20030726
  7. SIROLIMUS [Suspect]
     Route: 048
     Dates: start: 20030828
  8. SIROLIMUS [Suspect]
     Route: 048
     Dates: start: 20030924
  9. SIROLIMUS [Suspect]
     Route: 048
     Dates: start: 20031013
  10. PREDNISOLONE [Suspect]
     Route: 065
     Dates: start: 20030709
  11. PREDNISOLONE [Suspect]
     Route: 065
     Dates: start: 20030712
  12. SIMVASTATINA [Concomitant]
     Route: 048
     Dates: start: 20031015
  13. TRIMETROPRIM/SULFAMETOXAZOL [Concomitant]
     Route: 048
     Dates: start: 20030709
  14. CAPTOPRIL [Concomitant]
     Route: 048
     Dates: start: 20030820
  15. NIFEDIPINE [Concomitant]
     Route: 048
     Dates: start: 20030712

REACTIONS (1)
  - DEATH [None]
